FAERS Safety Report 6930359-2 (Version None)
Quarter: 2010Q3

REPORT INFORMATION
  Report Type: 
  Country: None (occurrence: None)
  Receive Date: 20100818
  Receipt Date: 20100810
  Transmission Date: 20110219
  Serious: Yes (Hospitalization)
  Sender: FDA-Public Use
  Company Number: US-ROCHE-720643

PATIENT
  Sex: Female
  Weight: 90.7 kg

DRUGS (3)
  1. XENICAL [Suspect]
     Indication: PRODUCT USED FOR UNKNOWN INDICATION
     Route: 065
  2. ALLI [Suspect]
     Indication: WEIGHT CONTROL
     Dosage: VARIABLE DOSE.
     Route: 048
     Dates: start: 20070101, end: 20100719
  3. PRAVASTATIN [Concomitant]
     Dates: start: 20100201

REACTIONS (4)
  - CHEST PAIN [None]
  - HEPATIC ENZYME INCREASED [None]
  - HEPATOMEGALY [None]
  - LIVER DISORDER [None]
